FAERS Safety Report 16659817 (Version 2)
Quarter: 2019Q3

REPORT INFORMATION
  Report Type: Spontaneous
  Country: BE (occurrence: BE)
  Receive Date: 20190802
  Receipt Date: 20190911
  Transmission Date: 20191004
  Serious: Yes (Other)
  Sender: FDA-Public Use
  Company Number: BE-TEVA-2019-BE-1085289

PATIENT
  Age: 75 Year
  Sex: Male

DRUGS (4)
  1. METFORMINE 850 MG [Suspect]
     Active Substance: METFORMIN HYDROCHLORIDE
  2. SIMVASTATINE 20 MG [Suspect]
     Active Substance: SIMVASTATIN
     Indication: PROPHYLAXIS
  3. L-THYROXINE (LEVOTHYROXINE) [Suspect]
     Active Substance: LEVOTHYROXINE
     Indication: THROMBOPHLEBITIS
  4. ATENOLOL 50 MG [Suspect]
     Active Substance: ATENOLOL

REACTIONS (1)
  - Pulmonary fibrosis [Unknown]
